FAERS Safety Report 5732971-5 (Version None)
Quarter: 2008Q2

REPORT INFORMATION
  Report Type: 
  Country: None (occurrence: None)
  Receive Date: 20080507
  Receipt Date: 20080507
  Transmission Date: 20081010
  Serious: Yes (Hospitalization)
  Sender: FDA-Public Use
  Company Number: None

PATIENT
  Age: 32 Year
  Sex: Female
  Weight: 49.4421 kg

DRUGS (1)
  1. DIGITEK 125 MG  BERTEK [Suspect]
     Indication: VENTRICULAR SEPTAL DEFECT
     Dosage: 1 TABLET, 1 X DAILY, BUCCAL
     Route: 002
     Dates: start: 19850201, end: 20080506

REACTIONS (7)
  - DIZZINESS [None]
  - HYPOTENSION [None]
  - NAUSEA [None]
  - PHARMACEUTICAL PRODUCT COMPLAINT [None]
  - STOMACH DISCOMFORT [None]
  - SYNCOPE [None]
  - VOMITING [None]
